FAERS Safety Report 5689378-9 (Version None)
Quarter: 2008Q1

REPORT INFORMATION
  Report Type: 
  Country: None (occurrence: None)
  Receive Date: 20080328
  Receipt Date: 20080313
  Transmission Date: 20080703
  Serious: Yes (Other)
  Sender: FDA-Public Use
  Company Number: IDR-00053

PATIENT
  Sex: Male

DRUGS (1)
  1. INDERAL LA [Suspect]
     Indication: DRUG EXPOSURE DURING PREGNANCY
     Dates: start: 19930101, end: 19930101

REACTIONS (8)
  - CAESAREAN SECTION [None]
  - CONVULSION NEONATAL [None]
  - DRUG EXPOSURE DURING PREGNANCY [None]
  - FOETAL DISTRESS SYNDROME [None]
  - GROWTH RETARDATION [None]
  - HYPOGLYCAEMIA [None]
  - PLACENTAL DISORDER [None]
  - SMALL FOR DATES BABY [None]
